FAERS Safety Report 14455967 (Version 1)
Quarter: 2018Q1

REPORT INFORMATION
  Report Type: Spontaneous
  Country: US (occurrence: US)
  Receive Date: 20180130
  Receipt Date: 20180130
  Transmission Date: 20180509
  Serious: Yes (Other)
  Sender: FDA-Public Use
  Company Number: US-ROCHE-2064419

PATIENT
  Age: 54 Year
  Sex: Female

DRUGS (3)
  1. PROPOFOL. [Concomitant]
     Active Substance: PROPOFOL
     Dosage: ONGOING:NO
     Route: 065
     Dates: start: 20180112, end: 20180112
  2. XOLAIR [Suspect]
     Active Substance: OMALIZUMAB
     Indication: ASTHMA
     Route: 058
  3. SUCCINYL CHOLINE [Concomitant]
     Active Substance: SUCCINYLCHOLINE
     Dosage: ONGOING:NO
     Route: 065
     Dates: start: 20180112, end: 20180112

REACTIONS (5)
  - Malaise [Unknown]
  - Muscular weakness [Recovered/Resolved]
  - Myalgia [Recovered/Resolved]
  - Arthralgia [Recovered/Resolved]
  - Eosinophil count increased [Unknown]

NARRATIVE: CASE EVENT DATE: 20180112
